FAERS Safety Report 17561568 (Version 2)
Quarter: 2020Q4

REPORT INFORMATION
  Report Type: Spontaneous
  Country: AU (occurrence: AU)
  Receive Date: 20200319
  Receipt Date: 20201207
  Transmission Date: 20210113
  Serious: Yes (Death, Hospitalization, Other)
  Sender: FDA-Public Use
  Company Number: AU-MYLANLABS-2020M1030128

PATIENT
  Sex: Male

DRUGS (1)
  1. CLOZARIL [Suspect]
     Active Substance: CLOZAPINE
     Indication: SCHIZOPHRENIA
     Dosage: 75 MILLIGRAM
     Route: 048
     Dates: start: 20181105

REACTIONS (5)
  - Brain natriuretic peptide increased [Unknown]
  - Respiratory tract infection [Unknown]
  - Cardiac failure [Unknown]
  - Hypopnoea [Fatal]
  - Urinary tract infection [Unknown]
